FAERS Safety Report 13080927 (Version 1)
Quarter: 2017Q1

REPORT INFORMATION
  Report Type: Spontaneous
  Country: FR (occurrence: FR)
  Receive Date: 20170103
  Receipt Date: 20170103
  Transmission Date: 20170428
  Serious: Yes (Hospitalization, Other)
  Sender: FDA-Public Use
  Company Number: FR-ELI_LILLY_AND_COMPANY-FR201612009749

PATIENT
  Age: 79 Year
  Sex: Female

DRUGS (8)
  1. ELIQUIS [Suspect]
     Active Substance: APIXABAN
     Dosage: 5 MG, EACH EVENING
     Route: 048
     Dates: start: 20161026, end: 20161027
  2. PAROXETINE. [Suspect]
     Active Substance: PAROXETINE
     Indication: MAJOR DEPRESSION
     Dosage: 20 MG, EACH EVENING
     Route: 048
     Dates: end: 20161026
  3. FUROSEMIDE. [Concomitant]
     Active Substance: FUROSEMIDE
     Dosage: 20 MG, QD
  4. CANDESARTAN [Concomitant]
     Active Substance: CANDESARTAN
     Dosage: 8 MG, EACH MORNING
  5. TIAPRIDE [Concomitant]
     Active Substance: TIAPRIDE
     Dosage: 0.25 DF, EACH EVENING
  6. ELIQUIS [Suspect]
     Active Substance: APIXABAN
     Indication: THROMBOSIS PROPHYLAXIS
     Dosage: 5 MG, EACH MORNING
     Route: 048
     Dates: start: 20161026, end: 20161027
  7. VITAMIN D3 [Concomitant]
     Active Substance: CHOLECALCIFEROL
  8. CYMBALTA [Suspect]
     Active Substance: DULOXETINE HYDROCHLORIDE
     Indication: MAJOR DEPRESSION
     Dosage: 30 MG, EACH MORNING
     Route: 048
     Dates: end: 20161026

REACTIONS (7)
  - Anaemia [Recovering/Resolving]
  - Head injury [Unknown]
  - Tachycardia [Unknown]
  - Syncope [Recovered/Resolved]
  - Oesophageal ulcer haemorrhage [Unknown]
  - Fall [Unknown]
  - Hiatus hernia [Unknown]

NARRATIVE: CASE EVENT DATE: 20161026
